FAERS Safety Report 6993435-4 (Version None)
Quarter: 2010Q3

REPORT INFORMATION
  Report Type: 
  Country: None (occurrence: None)
  Receive Date: 20100917
  Receipt Date: 20100218
  Transmission Date: 20110219
  Serious: Yes (Other)
  Sender: FDA-Public Use
  Company Number: US-ASTRAZENECA-2010SE07125

PATIENT
  Sex: Female
  Weight: 89.4 kg

DRUGS (6)
  1. SEROQUEL XR [Suspect]
     Indication: SLEEP DISORDER
     Route: 048
     Dates: start: 20100101
  2. SEROQUEL XR [Suspect]
     Indication: SUICIDAL IDEATION
     Route: 048
     Dates: start: 20100101
  3. SEROQUEL XR [Suspect]
     Indication: ANGER
     Route: 048
     Dates: start: 20100101
  4. OMEPRAZOLE [Concomitant]
     Indication: GASTROOESOPHAGEAL REFLUX DISEASE
     Route: 048
  5. CABERGOLINE [Concomitant]
     Indication: BLOOD PROLACTIN INCREASED
     Route: 048
  6. ACYCLOVIR [Concomitant]
     Indication: IMMUNE SYSTEM DISORDER
     Route: 048

REACTIONS (6)
  - BLOOD PROLACTIN INCREASED [None]
  - DYSPNOEA [None]
  - HEART RATE INCREASED [None]
  - HUNGER [None]
  - OEDEMA PERIPHERAL [None]
  - WEIGHT INCREASED [None]
